FAERS Safety Report 9254551 (Version 1)
Quarter: 2013Q1

REPORT INFORMATION
  Report Type: Spontaneous
  Country: US (occurrence: None)
  Receive Date: 20121210
  Receipt Date: 20121210
  Transmission Date: 20140127
  Serious: No
  Sender: FDA-Public Use
  Company Number: 1208USA006093

PATIENT
  Age: 69 Year
  Sex: Female

DRUGS (3)
  1. ZIOPTAN [Suspect]
     Indication: GLAUCOMA
     Dosage: ONE DROP IN EACH EYE PER EVENING, OPHTHALMIC
     Dates: start: 20120531
  2. REFRESH EYE DROPS (POLYVINYL ALCOHOL, PROVIDONE) [Concomitant]
  3. LEVOTHYROXINE SODIUM (LEVOTHYROXINE SODIUM) [Concomitant]

REACTIONS (6)
  - Cough [None]
  - Nasopharyngitis [None]
  - Joint stiffness [None]
  - Growth of eyelashes [None]
  - Eyelash discolouration [None]
  - Eye colour change [None]
